FAERS Safety Report 9525531 (Version 2)
Quarter: 2013Q4

REPORT INFORMATION
  Report Type: Report from Study
  Country: DE (occurrence: DE)
  Receive Date: 20130916
  Receipt Date: 20131021
  Transmission Date: 20140711
  Serious: Yes (Hospitalization)
  Sender: FDA-Public Use
  Company Number: DE-INCYTE CORPORATION-2013IN002057

PATIENT
  Age: 69 Year
  Sex: Female
  Weight: 74 kg

DRUGS (11)
  1. INCB018424 [Suspect]
     Indication: MYELOFIBROSIS
     Dosage: 40 MG, DAILY
     Route: 048
     Dates: start: 20130802
  2. INCB018424 [Suspect]
     Dosage: 20 MG, DAILY
     Route: 048
     Dates: start: 20130829, end: 20130829
  3. INCB018424 [Suspect]
     Dosage: 20 MG, DAILY
     Route: 048
     Dates: start: 20130903
  4. BELOC-ZOK COMP [Suspect]
     Indication: CARDIOVASCULAR DISORDER
     Dosage: 190 MG, DAILY
     Route: 065
  5. BELOC-ZOK COMP [Suspect]
     Dosage: 190 MG, DAILY
     Route: 065
  6. RAMIPRIL [Concomitant]
  7. SIMVASTATIN [Concomitant]
  8. ASS [Concomitant]
     Dosage: 100 MG, UNK
  9. XAGRID [Concomitant]
     Dosage: UNK
     Dates: start: 20120403, end: 20130724
  10. SYREA [Concomitant]
     Dosage: UNK
     Dates: start: 20130912
  11. DELIX [Concomitant]
     Dosage: UNK
     Dates: start: 20130904

REACTIONS (2)
  - Atrial fibrillation [Recovered/Resolved]
  - Tachycardia [Recovered/Resolved]
